FAERS Safety Report 5317571-3 (Version None)
Quarter: 2007Q2

REPORT INFORMATION
  Report Type: 
  Country: None (occurrence: None)
  Receive Date: 20070507
  Receipt Date: 20070425
  Transmission Date: 20071010
  Serious: Yes (Hospitalization, Other)
  Sender: FDA-Public Use
  Company Number: PHFR2007GB00876

PATIENT
  Age: 22 Year
  Sex: Male
  Weight: 80 kg

DRUGS (7)
  1. GLEEVEC [Suspect]
     Indication: CHRONIC MYELOID LEUKAEMIA
     Dosage: 600 MG, QD
     Route: 065
     Dates: start: 20070210
  2. GLEEVEC [Suspect]
     Dosage: 800MG
     Route: 065
     Dates: start: 20070216
  3. GLEEVEC [Suspect]
     Dosage: 400 MG, QD
     Route: 065
     Dates: start: 20070220
  4. ACYCLOVIR [Concomitant]
     Dosage: 800MG/DAY
     Route: 048
     Dates: start: 20070210
  5. ALLOPURINOL [Concomitant]
     Dosage: 300MG/DAY
     Route: 048
  6. HYDROXYUREA [Concomitant]
     Dosage: 1.5G/DAY
     Route: 048
     Dates: start: 20070210
  7. OMEPRAZOLE [Concomitant]
     Dosage: 20MG/DAY
     Route: 048

REACTIONS (2)
  - ERYTHEMA NODOSUM [None]
  - NO THERAPEUTIC RESPONSE [None]
